FAERS Safety Report 8091758-1 (Version None)
Quarter: 2012Q1

REPORT INFORMATION
  Report Type: 
  Country: None (occurrence: None)
  Receive Date: 20120129
  Receipt Date: 20111104
  Transmission Date: 20120608
  Serious: No
  Sender: FDA-Public Use
  Company Number: US-ABBOTT-11P-163-0871544-00

PATIENT
  Age: 41 Year
  Sex: Female

DRUGS (1)
  1. HUMIRA [Suspect]
     Indication: HIDRADENITIS
     Dates: start: 20110803

REACTIONS (2)
  - OFF LABEL USE [None]
  - INJECTION SITE PAIN [None]
